FAERS Safety Report 15857308 (Version 2)
Quarter: 2019Q1

REPORT INFORMATION
  Report Type: Spontaneous
  Country: JP (occurrence: JP)
  Receive Date: 20190123
  Receipt Date: 20190213
  Transmission Date: 20190417
  Serious: Yes (Hospitalization, Other)
  Sender: FDA-Public Use
  Company Number: JP-AMGEN-JPNSP2018177710

PATIENT
  Age: 66 Year
  Sex: Female
  Weight: 44 kg

DRUGS (13)
  1. JUNCHOTO [Concomitant]
     Active Substance: HERBALS
     Dosage: UNK UNK, TID
     Route: 065
     Dates: start: 20181022
  2. AMITIZA [Concomitant]
     Active Substance: LUBIPROSTONE
     Dosage: UNK UNK, BID
     Route: 065
     Dates: start: 20181022
  3. FENTANYL. [Concomitant]
     Active Substance: FENTANYL
     Indication: PAIN
     Dosage: 2.1 MG, ONCE EVERY 3 D
     Dates: start: 20181022
  4. GENTAMICIN SULFATE. [Concomitant]
     Active Substance: GENTAMICIN SULFATE
     Dosage: UNK UNK, QD (1 TO SEVERAL TIMES/DAY)
     Dates: start: 20181022
  5. IMIDAPRIL HYDROCHLORIDE [Concomitant]
     Active Substance: IMIDAPRIL HYDROCHLORIDE
     Dosage: UNK UNK, QD
     Route: 065
     Dates: start: 20181022
  6. CELECOX [Concomitant]
     Active Substance: CELECOXIB
     Indication: PAIN
     Dosage: UNK
     Route: 065
  7. RANMARK [Suspect]
     Active Substance: DENOSUMAB
     Indication: METASTASES TO BONE
     Dosage: 120 MG, Q4WK, TOTAL 19 TIMES
     Route: 058
     Dates: start: 20151128, end: 20170415
  8. AMLODIPINE [Concomitant]
     Active Substance: AMLODIPINE BESYLATE
     Dosage: UNK UNK, QD
     Route: 065
     Dates: start: 20181022
  9. REBAMIPIDE [Concomitant]
     Active Substance: REBAMIPIDE
     Dosage: UNK UNK, TID
     Route: 065
     Dates: start: 20181022
  10. CALONAL [Concomitant]
     Active Substance: ACETAMINOPHEN
     Indication: PAIN
     Dosage: UNK UNK, QID
     Route: 065
     Dates: start: 20181022
  11. FEBURIC [Concomitant]
     Active Substance: FEBUXOSTAT
     Dosage: UNK UNK, QD
     Route: 065
     Dates: start: 20181022
  12. LYRICA [Concomitant]
     Active Substance: PREGABALIN
     Indication: PAIN
     Dosage: UNK UNK, TID
     Route: 065
     Dates: start: 20181022
  13. MAGNESIUM OXIDE. [Concomitant]
     Active Substance: MAGNESIUM OXIDE
     Dosage: UNK UNK, TID
     Route: 065
     Dates: start: 20181022

REACTIONS (5)
  - Decreased appetite [Recovered/Resolved]
  - Osteonecrosis of jaw [Unknown]
  - Toothache [Unknown]
  - Fatigue [Recovered/Resolved]
  - Pyelonephritis chronic [Unknown]

NARRATIVE: CASE EVENT DATE: 20151205
